FAERS Safety Report 24710752 (Version 1)
Quarter: 2024Q4

REPORT INFORMATION
  Report Type: Spontaneous
  Country: US (occurrence: US)
  Receive Date: 20241209
  Receipt Date: 20241209
  Transmission Date: 20250115
  Serious: Yes (Other)
  Sender: SANOFI AVENTIS
  Company Number: US-SA-2024SA361020

PATIENT
  Age: 72 Year
  Sex: Female
  Weight: 102.82 kg

DRUGS (14)
  1. DUPIXENT [Suspect]
     Active Substance: DUPILUMAB
     Indication: Dermatitis atopic
     Dosage: 300 MG, QOW
     Route: 058
  2. TACROLIMUS [Concomitant]
     Active Substance: TACROLIMUS
  3. ELIQUIS [Concomitant]
     Active Substance: APIXABAN
  4. TIMOLOL [Concomitant]
     Active Substance: TIMOLOL\TIMOLOL MALEATE
  5. CYCLOSPORINE [Concomitant]
     Active Substance: CYCLOSPORINE
  6. FLECAINIDE ACETATE [Concomitant]
     Active Substance: FLECAINIDE ACETATE
  7. METOPROLOL SUCCINATE [Concomitant]
     Active Substance: METOPROLOL SUCCINATE
  8. PREDNISONE [Concomitant]
     Active Substance: PREDNISONE
  9. TRAZODONE HCL [Concomitant]
     Active Substance: TRAZODONE HYDROCHLORIDE
  10. FORTEO [Concomitant]
     Active Substance: TERIPARATIDE
  11. ACTEMRA [Concomitant]
     Active Substance: TOCILIZUMAB
  12. TYLENOL [Concomitant]
     Active Substance: ACETAMINOPHEN
  13. PREDNISONE [Concomitant]
     Active Substance: PREDNISONE
  14. ICOSAPENT ETHYL [Concomitant]
     Active Substance: ICOSAPENT ETHYL

REACTIONS (3)
  - Pneumonia [Unknown]
  - Cough [Unknown]
  - Fracture [Unknown]

NARRATIVE: CASE EVENT DATE: 20240101
